FAERS Safety Report 14314641 (Version 1)
Quarter: 2017Q4

REPORT INFORMATION
  Report Type: Spontaneous
  Country: GB (occurrence: GB)
  Receive Date: 20171221
  Receipt Date: 20171221
  Transmission Date: 20180321
  Serious: Yes (Disabling)
  Sender: FDA-Public Use
  Company Number: GB-TEVA-2017-GB-835335

PATIENT
  Age: 72 Year
  Sex: Male
  Weight: 84 kg

DRUGS (16)
  1. SEVELAMER [Concomitant]
     Active Substance: SEVELAMER
     Dosage: 160 MILLIGRAM DAILY;
  2. COLCHICINE. [Concomitant]
     Active Substance: COLCHICINE
     Dosage: 500 MILLIGRAM DAILY;
  3. FENCINO [Concomitant]
     Route: 048
  4. THIAMINE. [Concomitant]
     Active Substance: THIAMINE
     Dosage: 200 MILLIGRAM DAILY;
  5. OMEPRAZOLE. [Concomitant]
     Active Substance: OMEPRAZOLE
     Dosage: 1 DOSAGE FORMS DAILY;
     Route: 048
  6. PARACETAMOL [Concomitant]
     Active Substance: ACETAMINOPHEN
     Dosage: ONE OR TWO, AS NECESSARY
     Route: 048
  7. RAMIPRIL. [Concomitant]
     Active Substance: RAMIPRIL
  8. AMLODIPINE [Concomitant]
     Active Substance: AMLODIPINE BESYLATE
  9. DIAZEPAM. [Concomitant]
     Active Substance: DIAZEPAM
     Dosage: 1 DOSAGE FORMS DAILY;
     Route: 048
  10. ALFACALCIDOL [Concomitant]
     Active Substance: ALFACALCIDOL
  11. BUMETANIDE. [Concomitant]
     Active Substance: BUMETANIDE
     Dosage: 1 MILLIGRAM DAILY;
  12. LOPERAMIDE [Suspect]
     Active Substance: LOPERAMIDE
     Indication: DEPRESSION
     Dosage: 2 MILLIGRAM DAILY;
     Route: 048
     Dates: start: 20060511, end: 20171016
  13. BISOPROLOL [Concomitant]
     Active Substance: BISOPROLOL
  14. FOLIC ACID. [Concomitant]
     Active Substance: FOLIC ACID
     Dosage: 10 MILLIGRAM DAILY;
     Route: 048
  15. TEGRETOL [Concomitant]
     Active Substance: CARBAMAZEPINE
     Dosage: 400 MILLIGRAM DAILY;
     Route: 048
  16. BACLOFEN. [Concomitant]
     Active Substance: BACLOFEN
     Dosage: 2 DOSAGE FORMS DAILY;
     Route: 048

REACTIONS (3)
  - Tremor [Recovered/Resolved]
  - Extrapyramidal disorder [Recovered/Resolved]
  - Agitation [Recovered/Resolved]

NARRATIVE: CASE EVENT DATE: 20171005
